FAERS Safety Report 4376488-1 (Version None)
Quarter: 2004Q2

REPORT INFORMATION
  Report Type: 
  Country: None (occurrence: None)
  Receive Date: 20040610
  Receipt Date: 20040602
  Transmission Date: 20050107
  Serious: Yes (Other)
  Sender: FDA-Public Use
  Company Number: 2004036943

PATIENT
  Sex: Female

DRUGS (1)
  1. ACTIFED COLD + ALLERGY (PSEUDOEPHEDRINE, TRIPOLIDINE) [Suspect]
     Indication: SEASONAL ALLERGY
     Dosage: INTERMITTENTLY, ORAL
     Route: 048
     Dates: start: 19990101, end: 20040602

REACTIONS (1)
  - RAYNAUD'S PHENOMENON [None]
